FAERS Safety Report 7652880 (Version 2)
Quarter: 2013Q2

REPORT INFORMATION
  Report Type: Spontaneous
  Country: US (occurrence: US)
  Receive Date: 20101102
  Receipt Date: 20130620
  Transmission Date: 20140414
  Serious: No
  Sender: FDA-Public Use
  Company Number: US-BIOGENIDEC-2010BI037545

PATIENT
  Age: 63 Year
  Sex: Female

DRUGS (1)
  1. TYSABRI [Suspect]
     Indication: MULTIPLE SCLEROSIS
     Route: 042
     Dates: start: 20071008, end: 20130318

REACTIONS (3)
  - Mitochondrial myopathy [Not Recovered/Not Resolved]
  - Abasia [Not Recovered/Not Resolved]
  - Herpes zoster [Recovered/Resolved]
